FAERS Safety Report 8933469 (Version 2)
Quarter: 2013Q1

REPORT INFORMATION
  Report Type: Other
  Country: GB (occurrence: GB)
  Receive Date: 20121128
  Receipt Date: 20130102
  Transmission Date: 20140127
  Serious: Yes (Other)
  Sender: FDA-Public Use
  Company Number: GB-WATSON-2012-20396

PATIENT
  Age: 70 Year
  Sex: Male
  Weight: 102 kg

DRUGS (12)
  1. DOXAZOSIN MESYLATE [Suspect]
     Indication: HYPERTENSION
     Dosage: 4 MG IN THE MORNING4 MG, DAILY
     Route: 065
  2. BISOPROLOL (UNKNOWN) [Suspect]
     Indication: HYPERTENSION
     Dosage: 10 MG, DAILY  10 MG IN THE MORNING
     Route: 065
  3. ACCUPRO [Suspect]
     Dosage: 40 MG, DAILY   40 MG IN THE MORNING
     Route: 065
  4. DAPSONE [Concomitant]
     Indication: PRODUCT USED FOR UNKNOWN INDICATION
     Dosage: 50 MG, DAILY   50 MG, 1X/DAY
     Route: 065
  5. IBUPROFEN [Concomitant]
     Indication: PRODUCT USED FOR UNKNOWN INDICATION
     Dosage: 800 MG, DAILY   800 MG IN THE MORNING
     Route: 065
  6. OMEPRAZOLE [Concomitant]
     Indication: PRODUCT USED FOR UNKNOWN INDICATION
     Dosage: 10 MG, DAILY  10 MG IN THE MORNING
     Route: 065
  7. AMITRIPTYLINE [Concomitant]
     Indication: NEURALGIA
     Dosage: 25 MG, 2X/DAY25 MG, BID
     Route: 065
  8. SIMVASTATIN [Concomitant]
     Indication: PRODUCT USED FOR UNKNOWN INDICATION
     Dosage: 40 MG, DAILY  40 MG, 1X/DAY
     Route: 065
  9. FERROUS GLUCONATE [Concomitant]
     Indication: PRODUCT USED FOR UNKNOWN INDICATION
     Dosage: 300 MG, BID  300 MG, 2X/DAY
     Route: 065
  10. ASPIRIN [Concomitant]
     Indication: PRODUCT USED FOR UNKNOWN INDICATION
     Dosage: 150 MG, DAILY   150 MG, 1X/DAY
     Route: 065
  11. PARACETAMOL [Concomitant]
     Indication: PRODUCT USED FOR UNKNOWN INDICATION
     Dosage: 500 MG DAILY, AS NEEDED
     Route: 065
  12. ALLOPURINOL [Concomitant]
     Indication: PRODUCT USED FOR UNKNOWN INDICATION
     Dosage: 300 MG DAILY
     Route: 065

REACTIONS (2)
  - Blood pressure inadequately controlled [Unknown]
  - Palpitations [Unknown]
